FAERS Safety Report 9885739 (Version 2)
Quarter: 2014Q1

REPORT INFORMATION
  Report Type: Report from Study
  Country: DE (occurrence: TR)
  Receive Date: 20140210
  Receipt Date: 20140214
  Transmission Date: 20141002
  Serious: Yes (Death)
  Sender: FDA-Public Use
  Company Number: DE-ACTELION-A-US2014-94503

PATIENT
  Age: 61 Year
  Sex: Female

DRUGS (1)
  1. VENTAVIS [Suspect]
     Indication: PULMONARY HYPERTENSION
     Dosage: UNK
     Route: 055
     Dates: start: 20080107, end: 20140127

REACTIONS (1)
  - Respiratory failure [Fatal]
